FAERS Safety Report 6419655-5 (Version None)
Quarter: 2009Q4

REPORT INFORMATION
  Report Type: 
  Country: None (occurrence: None)
  Receive Date: 20091029
  Receipt Date: 20091023
  Transmission Date: 20100525
  Serious: Yes (Hospitalization)
  Sender: FDA-Public Use
  Company Number: A0813665A

PATIENT
  Sex: Male
  Weight: 74 kg

DRUGS (3)
  1. SERETIDE [Suspect]
     Indication: CHRONIC OBSTRUCTIVE PULMONARY DISEASE
     Dosage: 1PUFF TWICE PER DAY
     Route: 055
     Dates: start: 20000101
  2. DILACORON [Concomitant]
     Dosage: 1TAB THREE TIMES PER DAY
     Route: 065
     Dates: start: 20060101
  3. SIMVASTATIN [Concomitant]
     Dosage: 1TAB PER DAY
     Route: 065
     Dates: start: 20070101

REACTIONS (2)
  - LUNG DISORDER [None]
  - RESPIRATORY DISORDER [None]
